FAERS Safety Report 17047700 (Version 1)
Quarter: 2019Q4

REPORT INFORMATION
  Report Type: Spontaneous
  Country: US (occurrence: US)
  Receive Date: 20191116
  Receipt Date: 20191116
  Transmission Date: 20200122
  Serious: No
  Sender: FDA-Public Use
  Company Number: None

PATIENT
  Age: 20 Year
  Sex: Female
  Weight: 60.75 kg

DRUGS (1)
  1. CHOCOLATE CHIP COOKIE [CBD] [Suspect]
     Active Substance: CANNABIDIOL\HERBALS
     Indication: RELAXATION THERAPY
     Dosage: ?          QUANTITY:1 COOKIE;?
     Route: 048

REACTIONS (1)
  - Euphoric mood [None]

NARRATIVE: CASE EVENT DATE: 20191028
